FAERS Safety Report 4633564-3 (Version None)
Quarter: 2005Q2

REPORT INFORMATION
  Report Type: 
  Country: None (occurrence: None)
  Receive Date: 20050411
  Receipt Date: 20050411
  Transmission Date: 20051028
  Serious: Yes (Life-Threatening, Hospitalization)
  Sender: FDA-Public Use
  Company Number: None

PATIENT
  Age: 80 Year
  Sex: Male
  Weight: 82 kg

DRUGS (10)
  1. WARFARIN    5MG   DUPONT [Suspect]
     Indication: DEEP VEIN THROMBOSIS
     Dosage: 5MG/7.5MG   MON+THU/ROW  ORAL
     Route: 048
     Dates: start: 20040409, end: 20050309
  2. AMLODIPINE [Concomitant]
  3. ASPIRIN [Concomitant]
  4. CLOPIDOGREL [Concomitant]
  5. DOXAZOSIN [Concomitant]
  6. HYDROCHLOROTHIAZIDE [Concomitant]
  7. ISOSORBIDE MONONITRATE [Concomitant]
  8. LISINOPRIL [Concomitant]
  9. RANITIDINE [Concomitant]
  10. SIMVASTATIN [Concomitant]

REACTIONS (3)
  - LOSS OF CONSCIOUSNESS [None]
  - PULSE ABSENT [None]
  - UPPER GASTROINTESTINAL HAEMORRHAGE [None]
